FAERS Safety Report 25683123 (Version 1)
Quarter: 2025Q3

REPORT INFORMATION
  Report Type: Spontaneous
  Country: US (occurrence: US)
  Receive Date: 20250814
  Receipt Date: 20250814
  Transmission Date: 20251021
  Serious: No
  Sender: ALEXION PHARMACEUTICALS
  Company Number: US-AstraZeneca-CH-00930261A

PATIENT
  Age: 79 Year
  Sex: Female

DRUGS (1)
  1. WAINUA [Suspect]
     Active Substance: EPLONTERSEN
     Indication: Cardiac amyloidosis

REACTIONS (1)
  - Pain [Unknown]

NARRATIVE: CASE EVENT DATE: 20250812
